FAERS Safety Report 12982252 (Version 1)
Quarter: 2016Q4

REPORT INFORMATION
  Report Type: Spontaneous
  Country: US (occurrence: US)
  Receive Date: 20161128
  Receipt Date: 20161128
  Transmission Date: 20170207
  Serious: No
  Sender: FDA-Public Use
  Company Number: None

PATIENT
  Age: 78 Year
  Sex: Female
  Weight: 81 kg

DRUGS (10)
  1. ZIAC [Concomitant]
     Active Substance: BISOPROLOL FUMARATE\HYDROCHLOROTHIAZIDE
  2. PLAQUENEL [Concomitant]
  3. VITAMIN D [Concomitant]
     Active Substance: CHOLECALCIFEROL
  4. MAGNESIUM [Concomitant]
     Active Substance: MAGNESIUM
  5. XANAX [Concomitant]
     Active Substance: ALPRAZOLAM
  6. ZAZOTEC (GENERIC) [Concomitant]
  7. LEVOFLOXACIN. [Suspect]
     Active Substance: LEVOFLOXACIN
     Indication: INFECTION
     Dosage: ?          QUANTITY:21 TABLET(S);?
     Route: 048
     Dates: start: 20161105, end: 20161106
  8. POTASSIUM [Concomitant]
     Active Substance: POTASSIUM
  9. PREDNISONE. [Concomitant]
     Active Substance: PREDNISONE
  10. FISH OIL [Concomitant]
     Active Substance: FISH OIL

REACTIONS (6)
  - Asthenia [None]
  - Gait disturbance [None]
  - Tremor [None]
  - Heart rate increased [None]
  - Dysarthria [None]
  - Dysgraphia [None]

NARRATIVE: CASE EVENT DATE: 20161106
